FAERS Safety Report 18870384 (Version 1)
Quarter: 2021Q1

REPORT INFORMATION
  Report Type: Spontaneous
  Country: US (occurrence: US)
  Receive Date: 20210210
  Receipt Date: 20210210
  Transmission Date: 20210420
  Serious: No
  Sender: FDA-Public Use
  Company Number: US-SA-2021SA042785

PATIENT
  Sex: Male

DRUGS (1)
  1. DUPIXENT [Suspect]
     Active Substance: DUPILUMAB
     Indication: DERMATITIS HERPETIFORMIS
     Dosage: 300 MG, QOW
     Route: 058
     Dates: start: 20201109

REACTIONS (1)
  - Product use in unapproved indication [Unknown]
